FAERS Safety Report 25074397 (Version 3)
Quarter: 2025Q1

REPORT INFORMATION
  Report Type: Spontaneous
  Country: CH (occurrence: CH)
  Receive Date: 20250313
  Receipt Date: 20250327
  Transmission Date: 20250409
  Serious: Yes (Hospitalization, Other)
  Sender: SANOFI AVENTIS
  Company Number: CH-MLMSERVICE-20250228-PI432872-00106-1

PATIENT
  Age: 61 Year
  Sex: Male

DRUGS (7)
  1. CLOPIDOGREL BISULFATE [Suspect]
     Active Substance: CLOPIDOGREL BISULFATE
     Indication: Myocardial ischaemia
     Dosage: 75 MG, QD
     Route: 048
  2. RIVAROXABAN [Suspect]
     Active Substance: RIVAROXABAN
     Indication: Atrial fibrillation
     Dosage: 20 MG, QD
     Route: 048
  3. METOPROLOL [Concomitant]
     Active Substance: METOPROLOL
  4. CANDESARTAN [Concomitant]
     Active Substance: CANDESARTAN
  5. CANDESARTAN [Concomitant]
     Active Substance: CANDESARTAN
  6. ATORVASTATIN\EZETIMIBE [Concomitant]
     Active Substance: ATORVASTATIN\EZETIMIBE
     Indication: Myocardial ischaemia
  7. ATORVASTATIN\EZETIMIBE [Concomitant]
     Active Substance: ATORVASTATIN\EZETIMIBE
     Indication: Atrial fibrillation

REACTIONS (7)
  - Spinal epidural haematoma [Recovered/Resolved]
  - Neck pain [Recovered/Resolved]
  - Chest pain [Recovered/Resolved]
  - Paraesthesia [Recovered/Resolved]
  - Paresis [Recovered/Resolved]
  - Hypoaesthesia [Recovered/Resolved]
  - Spinal cord compression [Recovered/Resolved]
